FAERS Safety Report 9224086 (Version 2)
Quarter: 2013Q2

REPORT INFORMATION
  Report Type: Spontaneous
  Country: IS (occurrence: IS)
  Receive Date: 20130411
  Receipt Date: 20130416
  Transmission Date: 20140414
  Serious: Yes (Other)
  Sender: FDA-Public Use
  Company Number: IS-PFIZER INC-2009305255

PATIENT
  Age: 41 Year
  Sex: Male

DRUGS (1)
  1. LYRICA [Suspect]
     Dosage: UNK

REACTIONS (2)
  - Drug abuse [Unknown]
  - Feeling abnormal [Unknown]
